FAERS Safety Report 8487351-9 (Version None)
Quarter: 2012Q2

REPORT INFORMATION
  Report Type: 
  Country: None (occurrence: None)
  Receive Date: 20120628
  Receipt Date: 20120628
  Transmission Date: 20120825
  Serious: No
  Sender: FDA-Public Use
  Company Number: None

PATIENT
  Sex: Male
  Weight: 80.2867 kg

DRUGS (2)
  1. CIMZIA [Suspect]
     Dosage: 200MG X 2 /MONTHLY IM
     Route: 030
     Dates: start: 20110224
  2. CIMZIA [Suspect]
     Dosage: 200MG X 2 /MONTHLY IM
     Route: 030
     Dates: start: 20110310, end: 20110421

REACTIONS (7)
  - INFLAMMATORY BOWEL DISEASE [None]
  - CONDITION AGGRAVATED [None]
  - IRON DEFICIENCY ANAEMIA [None]
  - ARTHRITIS [None]
  - MULTIPLE SCLEROSIS [None]
  - DEPRESSION [None]
  - CROHN'S DISEASE [None]
